FAERS Safety Report 9554114 (Version 1)
Quarter: 2013Q3

REPORT INFORMATION
  Report Type: Spontaneous
  Country: US (occurrence: US)
  Receive Date: 20130925
  Receipt Date: 20130925
  Transmission Date: 20140515
  Serious: No
  Sender: FDA-Public Use
  Company Number: US-ABBVIE-13P-163-1055383-00

PATIENT
  Sex: Female

DRUGS (1)
  1. VICOPROFEN [Suspect]
     Indication: PAIN

REACTIONS (4)
  - Feeling hot [Unknown]
  - Dizziness [Unknown]
  - Vomiting [Unknown]
  - Tremor [Unknown]
